FAERS Safety Report 8791464 (Version 1)
Quarter: 2012Q4

REPORT INFORMATION
  Report Type: Spontaneous
  Country: US (occurrence: None)
  Receive Date: 20120911
  Receipt Date: 20120911
  Transmission Date: 20130627
  Serious: Yes (Hospitalization, Other)
  Sender: FDA-Public Use
  Company Number: 2012MA010707

PATIENT
  Age: 68 Year
  Sex: Female
  Weight: 84 kg

DRUGS (31)
  1. BUPROPION HYDROCHLORIDE XL [Suspect]
     Indication: DRUG USE FOR UNKNOWN INDICATION
  2. FENTANYL [Suspect]
     Indication: PAIN
  3. FENTANYL [Suspect]
     Indication: ANESTHESIA
  4. ONDANSETRON [Suspect]
  5. PAROXETINE [Suspect]
  6. DULOXETINE [Suspect]
  7. HYDROMORPHONE [Concomitant]
  8. GABAPENTIN [Concomitant]
  9. OMEPRAZOLE [Concomitant]
  10. LEVOTHYROXINE [Concomitant]
  11. LISINOPRIL [Concomitant]
  12. OXYCODONE [Concomitant]
  13. FLUODRICORTISONE [Concomitant]
  14. TRIAMTERENE/ HYDROCOROTHIAZIDE [Concomitant]
  15. ATORVASTATIN [Concomitant]
  16. TIAGABINE [Concomitant]
  17. ALENDRONATE [Concomitant]
  18. SENNA [Concomitant]
  19. CLONAZEPAM [Concomitant]
  20. MULTI-VITAMIN [Concomitant]
  21. MIDAZOLAM [Concomitant]
  22. PROPOFOL [Concomitant]
  23. SUCCINYLCHOLINE [Concomitant]
  24. DESFLURANE [Concomitant]
  25. NITROUS OXIDE [Concomitant]
  26. OXYGEN MIXTURE [Concomitant]
  27. CALCIUM TABS [Concomitant]
  28. SULFONAMIDE [Concomitant]
  29. LEVOFLOXACIN [Concomitant]
  30. PREGABALIN [Concomitant]
  31. HYDROCODONE [Concomitant]

REACTIONS (4)
  - Serotonin syndrome [None]
  - Unresponsive to stimuli [None]
  - Apnoea [None]
  - Blood pressure decreased [None]
